FAERS Safety Report 5031467-6 (Version None)
Quarter: 2006Q2

REPORT INFORMATION
  Report Type: 
  Country: None (occurrence: None)
  Receive Date: 20060621
  Receipt Date: 20060613
  Transmission Date: 20061013
  Serious: Yes (Death)
  Sender: FDA-Public Use
  Company Number: DE-BRISTOL-MYERS SQUIBB COMPANY-13415310

PATIENT
  Age: 80 Year

DRUGS (3)
  1. MITOMYCIN [Suspect]
     Indication: ANAL CANCER
     Route: 042
  2. FLUOROURACIL [Suspect]
     Indication: ANAL CANCER
     Route: 042
  3. RADIATION THERAPY [Suspect]
     Indication: ANAL CANCER

REACTIONS (1)
  - ENTERITIS [None]
